FAERS Safety Report 22995499 (Version 3)
Quarter: 2023Q4

REPORT INFORMATION
  Report Type: Report from Study
  Country: CR (occurrence: CR)
  Receive Date: 20230927
  Receipt Date: 20231208
  Transmission Date: 20240109
  Serious: Yes (Other)
  Sender: FDA-Public Use
  Company Number: CR-002147023-NVSC2023CR164475

PATIENT
  Sex: Male

DRUGS (2)
  1. KESIMPTA [Suspect]
     Active Substance: OFATUMUMAB
     Indication: Multiple sclerosis
     Dosage: 20 MG, QMO
     Route: 058
     Dates: start: 20230720
  2. KESIMPTA [Suspect]
     Active Substance: OFATUMUMAB
     Indication: Relapsing-remitting multiple sclerosis
     Dosage: UNK
     Route: 058

REACTIONS (34)
  - Glaucoma [Unknown]
  - Multiple sclerosis [Unknown]
  - Neck pain [Unknown]
  - Head and neck cancer [Unknown]
  - Eye pain [Recovered/Resolved]
  - Paraesthesia [Unknown]
  - Bradycardia [Unknown]
  - Cataract [Unknown]
  - Psychiatric symptom [Unknown]
  - Fatigue [Unknown]
  - Disease progression [Unknown]
  - Pain in extremity [Unknown]
  - Somnolence [Unknown]
  - Ejaculation disorder [Unknown]
  - Headache [Unknown]
  - Body temperature increased [Unknown]
  - Diarrhoea [Unknown]
  - Injection site discomfort [Unknown]
  - Stress [Unknown]
  - Vision blurred [Recovering/Resolving]
  - Dyschromatopsia [Unknown]
  - Pain [Unknown]
  - Tremor [Unknown]
  - Muscular weakness [Not Recovered/Not Resolved]
  - Injection site pruritus [Unknown]
  - Arthralgia [Unknown]
  - Visual impairment [Unknown]
  - Anxiety [Unknown]
  - General physical health deterioration [Unknown]
  - Emotional distress [Unknown]
  - Eye injury [Unknown]
  - Depression [Unknown]
  - Sensory loss [Unknown]
  - Nasopharyngitis [Unknown]

NARRATIVE: CASE EVENT DATE: 20230101
